FAERS Safety Report 7435950-5 (Version None)
Quarter: 2011Q2

REPORT INFORMATION
  Report Type: 
  Country: None (occurrence: None)
  Receive Date: 20110425
  Receipt Date: 20110414
  Transmission Date: 20111010
  Serious: Yes (Hospitalization)
  Sender: FDA-Public Use
  Company Number: US-ASTRAZENECA-2011SE21895

PATIENT
  Age: 3 Year
  Sex: Female

DRUGS (2)
  1. NEXIUM [Suspect]
     Route: 048
  2. NEXIUM [Suspect]
     Indication: GASTROOESOPHAGEAL REFLUX DISEASE
     Dosage: BID
     Route: 048

REACTIONS (3)
  - FEEDING TUBE COMPLICATION [None]
  - HOSPITALISATION [None]
  - DRUG PRESCRIBING ERROR [None]
